FAERS Safety Report 9959505 (Version 1)
Quarter: 2014Q1

REPORT INFORMATION
  Report Type: Spontaneous
  Country: US (occurrence: None)
  Receive Date: 20140228
  Receipt Date: 20140228
  Transmission Date: 20141002
  Serious: Yes (Hospitalization)
  Sender: FDA-Public Use
  Company Number: None

PATIENT
  Age: 76 Year
  Sex: Female

DRUGS (7)
  1. IMBRUVICA [Suspect]
     Route: 048
     Dates: start: 20140111, end: 20140225
  2. ATENOLOL [Concomitant]
  3. ZETIA [Concomitant]
  4. LEVOXIL [Concomitant]
  5. LIPITOR [Concomitant]
  6. ALPERENOL [Concomitant]
  7. LESARTIN [Concomitant]

REACTIONS (2)
  - Groin infection [None]
  - B-lymphocyte count increased [None]
